FAERS Safety Report 15129855 (Version 1)
Quarter: 2018Q3

REPORT INFORMATION
  Report Type: Spontaneous
  Country: IN (occurrence: IN)
  Receive Date: 20180711
  Receipt Date: 20180711
  Transmission Date: 20181010
  Serious: Yes (Other)
  Sender: FDA-Public Use
  Company Number: IN-INGENUS PHARMACEUTICALS, LLC-INF201807-000665

PATIENT
  Age: 18 Year
  Sex: Male

DRUGS (3)
  1. 5 FLUOROURACIL [Suspect]
     Active Substance: FLUOROURACIL
     Dosage: 10 CYCLES
  2. IRINOTECAN [Suspect]
     Active Substance: IRINOTECAN
     Dosage: 10 CYCLES
  3. FOLINIC ACID [Suspect]
     Active Substance: LEUCOVORIN
     Dosage: 10 CYCLES

REACTIONS (1)
  - Posterior reversible encephalopathy syndrome [Not Recovered/Not Resolved]
